FAERS Safety Report 6178937-5 (Version None)
Quarter: 2009Q2

REPORT INFORMATION
  Report Type: 
  Country: None (occurrence: None)
  Receive Date: 20090505
  Receipt Date: 20090427
  Transmission Date: 20091009
  Serious: Yes (Hospitalization)
  Sender: FDA-Public Use
  Company Number: JP-JNJFOC-20090302755

PATIENT
  Sex: Female
  Weight: 51 kg

DRUGS (3)
  1. ORTHO-NOVUM 1/35-21 [Suspect]
     Indication: DYSMENORRHOEA
     Route: 048
  2. ORTHO-NOVUM 1/35-21 [Suspect]
     Indication: ENDOMETRIOSIS
     Route: 048
  3. CARBAMAZEPINE [Suspect]
     Indication: DRUG USE FOR UNKNOWN INDICATION
     Route: 048

REACTIONS (2)
  - OFF LABEL USE [None]
  - UTERINE LEIOMYOMA [None]
